FAERS Safety Report 20637238 (Version 1)
Quarter: 2022Q1

REPORT INFORMATION
  Report Type: Spontaneous
  Country: TN (occurrence: TN)
  Receive Date: 20220325
  Receipt Date: 20220325
  Transmission Date: 20220423
  Serious: Yes (Hospitalization)
  Sender: FDA-Public Use
  Company Number: TN-JUBILANT CADISTA PHARMACEUTICALS-2022JUB00078

PATIENT
  Age: 19 Year
  Sex: Male

DRUGS (2)
  1. QUETIAPINE [Suspect]
     Active Substance: QUETIAPINE
     Indication: Psychiatric symptom
     Dosage: 400 MG, 1X/DAY
     Route: 065
     Dates: start: 2020
  2. VALPROIC ACID [Suspect]
     Active Substance: VALPROIC ACID
     Indication: Psychiatric symptom
     Dosage: 1500 MG, 1X/DAY
     Route: 065
     Dates: start: 2020

REACTIONS (2)
  - Thrombocytopenic purpura [Recovered/Resolved]
  - Drug interaction [Recovered/Resolved]

NARRATIVE: CASE EVENT DATE: 20201201
